FAERS Safety Report 11220060 (Version 2)
Quarter: 2019Q2

REPORT INFORMATION
  Report Type: Spontaneous
  Country: FR (occurrence: FR)
  Receive Date: 20150625
  Receipt Date: 20190419
  Transmission Date: 20190711
  Serious: Yes (Congenital Anomaly, Other)
  Sender: FDA-Public Use
  Company Number: FR-ABBVIE-15P-056-1415577-00

PATIENT
  Sex: Male

DRUGS (1)
  1. DEPAKINE [Suspect]
     Active Substance: VALPROATE SODIUM
     Indication: MATERNAL EXPOSURE TIMING UNSPECIFIED
     Route: 064

REACTIONS (13)
  - Dysphagia [Unknown]
  - Hypospadias [Recovered/Resolved]
  - Thrombocytopenia neonatal [Recovered/Resolved]
  - Psychomotor retardation [Unknown]
  - Astigmatism [Unknown]
  - Hypotonia neonatal [Unknown]
  - Skull malformation [Unknown]
  - Inguinal hernia [Recovered/Resolved]
  - Respiratory tract infection [Unknown]
  - Muscle rigidity [Unknown]
  - Motor developmental delay [Unknown]
  - Speech disorder developmental [Unknown]
  - Foetal exposure during pregnancy [Unknown]

NARRATIVE: CASE EVENT DATE: 20131218
